FAERS Safety Report 24624936 (Version 3)
Quarter: 2024Q4

REPORT INFORMATION
  Report Type: Spontaneous
  Country: FR (occurrence: FR)
  Receive Date: 20241115
  Receipt Date: 20241211
  Transmission Date: 20250115
  Serious: Yes (Other)
  Sender: SANDOZ
  Company Number: FR-PFR-202400043

PATIENT
  Age: 48 Year
  Sex: Female

DRUGS (13)
  1. RITALIN [Suspect]
     Active Substance: METHYLPHENIDATE HYDROCHLORIDE
     Indication: Hypersomnia
     Dosage: 160 MG, QD,40 MG, QID ( 4 CAPSULES OF  40MG, 4 TIMES A DAY.)
     Route: 065
     Dates: start: 2024, end: 2024
  2. RITALIN [Suspect]
     Active Substance: METHYLPHENIDATE HYDROCHLORIDE
     Dosage: UNK
     Route: 065
     Dates: start: 2024
  3. METHYLPHENIDATE HYDROCHLORIDE [Suspect]
     Active Substance: METHYLPHENIDATE HYDROCHLORIDE
     Dosage: 25 DF, QD,5 DOSAGE FORM (5 TIMES DAILY) 5QD (5 CAPSULES 5 TIMES DAILY)
     Route: 065
     Dates: end: 2024
  4. METHYLPHENIDATE HYDROCHLORIDE [Suspect]
     Active Substance: METHYLPHENIDATE HYDROCHLORIDE
     Indication: Hypersomnia
     Dosage: 25 DF, QD,5 DOSAGE FORM, 5QD (5 CAPSULES 5 TIMES DAILY)
     Route: 048
     Dates: end: 2024
  5. METHYLPHENIDATE HYDROCHLORIDE [Suspect]
     Active Substance: METHYLPHENIDATE HYDROCHLORIDE
     Dosage: 5 DF
     Route: 065
  6. METHYLPHENIDATE HYDROCHLORIDE [Suspect]
     Active Substance: METHYLPHENIDATE HYDROCHLORIDE
     Indication: Hypersomnia
     Dosage: 60 MG, RITALINE L.P.
     Route: 048
     Dates: end: 20240822
  7. METHYLPHENIDATE HYDROCHLORIDE [Suspect]
     Active Substance: METHYLPHENIDATE HYDROCHLORIDE
     Dosage: 80 MG, QD,MORE THAN 80 MG, QD
     Route: 065
     Dates: start: 202408
  8. METHYLPHENIDATE HYDROCHLORIDE [Suspect]
     Active Substance: METHYLPHENIDATE HYDROCHLORIDE
     Dosage: UNK
     Route: 065
     Dates: start: 2017
  9. METHYLPHENIDATE [Concomitant]
     Active Substance: METHYLPHENIDATE
     Indication: Product used for unknown indication
     Dosage: 6 DF,6 DOSAGE FORM (40 LM, 6 TABLETS, 5 TIMES DAILY)
     Route: 065
  10. METHYLPHENIDATE [Concomitant]
     Active Substance: METHYLPHENIDATE
     Dosage: UNK (20 LM)
     Route: 065
  11. OXAZEPAM [Concomitant]
     Active Substance: OXAZEPAM
     Indication: Anxiety
     Dosage: 15 DF, QD,5 DOSAGE FORM, TID
     Route: 065
  12. ESCITALOPRAM OXALATE [Concomitant]
     Active Substance: ESCITALOPRAM OXALATE
     Indication: Depression
     Dosage: UNK
     Route: 065
  13. PALIPERIDONE PALMITATE [Concomitant]
     Active Substance: PALIPERIDONE PALMITATE
     Indication: Psychotic disorder
     Dosage: 1 DF, QMO
     Route: 065

REACTIONS (21)
  - Altered state of consciousness [Unknown]
  - Drug dependence [Unknown]
  - Anhedonia [Unknown]
  - Malaise [Not Recovered/Not Resolved]
  - Fall [Unknown]
  - Head injury [Unknown]
  - Logorrhoea [Unknown]
  - Disorganised speech [Unknown]
  - Decreased interest [Unknown]
  - Contusion [Unknown]
  - Adverse event [Unknown]
  - Cerebral disorder [Not Recovered/Not Resolved]
  - Somnolence [Unknown]
  - Product prescribing issue [Unknown]
  - Contraindicated product prescribed [Unknown]
  - Contraindicated product administered [Unknown]
  - Drug effective for unapproved indication [Unknown]
  - Intentional product misuse [Unknown]
  - Product dispensing issue [Unknown]
  - Intentional overdose [Unknown]
  - Off label use [Unknown]

NARRATIVE: CASE EVENT DATE: 20240801
